FAERS Safety Report 7007053-5 (Version None)
Quarter: 2010Q3

REPORT INFORMATION
  Report Type: 
  Country: None (occurrence: None)
  Receive Date: 20100922
  Receipt Date: 20100914
  Transmission Date: 20110219
  Serious: Yes (Hospitalization)
  Sender: FDA-Public Use
  Company Number: PHHY2010AU61300

PATIENT
  Sex: Male

DRUGS (2)
  1. CLOZARIL [Suspect]
     Dosage: 400 MG
     Dates: start: 20100218
  2. CLOZARIL [Suspect]
     Dosage: 80X100 MG

REACTIONS (6)
  - DELIRIUM [None]
  - DELUSIONAL PERCEPTION [None]
  - FEAR [None]
  - LOWER RESPIRATORY TRACT INFECTION [None]
  - OVERDOSE [None]
  - TREATMENT NONCOMPLIANCE [None]
